FAERS Safety Report 15265456 (Version 1)
Quarter: 2018Q4

REPORT INFORMATION
  Report Type: Spontaneous
  Country: US (occurrence: US)
  Receive Date: 20180810
  Receipt Date: 20180810
  Transmission Date: 20190204
  Serious: Yes (Hospitalization, Other)
  Sender: FDA-Public Use
  Company Number: US-INDIVIOR LIMITED-INDV-113010-2018

PATIENT
  Age: 2 Year
  Sex: Male

DRUGS (1)
  1. SUBOXONE [Suspect]
     Active Substance: BUPRENORPHINE HYDROCHLORIDE\NALOXONE HYDROCHLORIDE
     Dosage: UNK
     Route: 048
     Dates: start: 20180722, end: 20180722

REACTIONS (10)
  - Sedation complication [Recovered/Resolved]
  - Somnolence [Recovered/Resolved]
  - Heart rate decreased [Recovered/Resolved]
  - Oxygen saturation decreased [Recovered/Resolved]
  - Agitation [Recovered/Resolved]
  - Miosis [Recovered/Resolved]
  - Drug screen negative [Recovered/Resolved]
  - Accidental exposure to product by child [Recovered/Resolved]
  - Unresponsive to stimuli [Recovered/Resolved]
  - Overdose [Recovered/Resolved]

NARRATIVE: CASE EVENT DATE: 201807
